FAERS Safety Report 19761939 (Version 1)
Quarter: 2021Q3

REPORT INFORMATION
  Report Type: Spontaneous
  Country: US (occurrence: US)
  Receive Date: 20210830
  Receipt Date: 20210830
  Transmission Date: 20211014
  Serious: No
  Sender: FDA-Public Use
  Company Number: US-SUN PHARMACEUTICAL INDUSTRIES LTD-2021R1-306091

PATIENT
  Sex: Female

DRUGS (1)
  1. MEDROXYPROGESTERONE [Suspect]
     Active Substance: MEDROXYPROGESTERONE
     Indication: PREGNANCY
     Dosage: 1 DOSAGE FORM, 3 MONTHLY
     Route: 030
     Dates: start: 202009

REACTIONS (2)
  - Product dose omission issue [Unknown]
  - Product closure issue [Unknown]
